FAERS Safety Report 4343087-7 (Version None)
Quarter: 2004Q2

REPORT INFORMATION
  Report Type: 
  Country: None (occurrence: None)
  Receive Date: 20040419
  Receipt Date: 20040401
  Transmission Date: 20050107
  Serious: Yes (Hospitalization)
  Sender: FDA-Public Use
  Company Number: 2002-FF-00651FF

PATIENT
  Age: 43 Year
  Sex: Male

DRUGS (3)
  1. VIRAMUNE [Suspect]
     Indication: HIV INFECTION
     Dosage: 400 MG (200 MG) PO
     Route: 048
     Dates: start: 19980420
  2. VIRACEPT [Concomitant]
  3. ZERIT [Concomitant]

REACTIONS (5)
  - ANKYLOSING SPONDYLITIS [None]
  - ARTHRALGIA [None]
  - GAIT DISTURBANCE [None]
  - OSTEOARTHRITIS [None]
  - OSTEONECROSIS [None]
